FAERS Safety Report 23192983 (Version 2)
Quarter: 2023Q4

REPORT INFORMATION
  Report Type: Report from Study
  Country: CA (occurrence: CA)
  Receive Date: 20231116
  Receipt Date: 20231211
  Transmission Date: 20240110
  Serious: Yes (Other)
  Sender: FDA-Public Use
  Company Number: CA-ABBVIE-5495792

PATIENT
  Sex: Male

DRUGS (1)
  1. LUPRON DEPOT [Suspect]
     Active Substance: LEUPROLIDE ACETATE
     Indication: Prostate cancer
     Dosage: FORM OF ADMINISTRATION: POWDER AND SOLVENT FOR SUSPENSION FOR INJECTION IN PRE-FILLED SYRINGE
     Route: 065
     Dates: start: 20200330

REACTIONS (9)
  - Bone cancer [Not Recovered/Not Resolved]
  - Prostate cancer [Unknown]
  - Prostatic specific antigen increased [Not Recovered/Not Resolved]
  - Liver disorder [Not Recovered/Not Resolved]
  - Decreased appetite [Unknown]
  - Haematochezia [Not Recovered/Not Resolved]
  - Diarrhoea [Not Recovered/Not Resolved]
  - Weight decreased [Unknown]
  - Gastrointestinal disorder [Unknown]

NARRATIVE: CASE EVENT DATE: 20230101
